FAERS Safety Report 9586294 (Version 2)
Quarter: 2013Q4

REPORT INFORMATION
  Report Type: Report from Study
  Country: US (occurrence: US)
  Receive Date: 20131003
  Receipt Date: 20131009
  Transmission Date: 20140711
  Serious: Yes (Death, Hospitalization)
  Sender: FDA-Public Use
  Company Number: PHEH2013US020479

PATIENT
  Sex: Female

DRUGS (2)
  1. AFINITOR [Suspect]
     Indication: BREAST CANCER
     Dosage: 10 MG, DAILY
     Route: 048
     Dates: start: 201309, end: 20130911
  2. XGEVA [Concomitant]
     Indication: METASTASES TO BONE
     Dosage: 120 MG (4 WKSX2DOSES)
     Route: 058
     Dates: start: 20130805, end: 20130903

REACTIONS (3)
  - Breast cancer metastatic [Fatal]
  - Hepatic encephalopathy [Unknown]
  - General physical health deterioration [Unknown]
